FAERS Safety Report 16192737 (Version 2)
Quarter: 2019Q3

REPORT INFORMATION
  Report Type: Spontaneous
  Country: US (occurrence: US)
  Receive Date: 20190412
  Receipt Date: 20190703
  Transmission Date: 20191004
  Serious: Yes (Other)
  Sender: FDA-Public Use
  Company Number: US-ASTRAZENECA-2019SE52993

PATIENT
  Age: 23334 Day
  Sex: Female
  Weight: 104.3 kg

DRUGS (17)
  1. KOMBIGLYZE XR [Suspect]
     Active Substance: METFORMIN HYDROCHLORIDE\SAXAGLIPTIN HYDROCHLORIDE
     Indication: TYPE 2 DIABETES MELLITUS
     Route: 048
     Dates: start: 20130709, end: 20170410
  2. GLIMEPIRIDE. [Concomitant]
     Active Substance: GLIMEPIRIDE
  3. JANUMET [Concomitant]
     Active Substance: METFORMIN HYDROCHLORIDE\SITAGLIPTIN PHOSPHATE
     Dates: start: 20170925
  4. AZITHROMYCIN ANHYDROUS. [Concomitant]
     Active Substance: AZITHROMYCIN ANHYDROUS
  5. LEVOTHYROXINE. [Concomitant]
     Active Substance: LEVOTHYROXINE
     Dates: start: 20150313
  6. ATORVASTATIN [Concomitant]
     Active Substance: ATORVASTATIN
  7. CEFUROXIME. [Concomitant]
     Active Substance: CEFUROXIME
     Dates: start: 20160609
  8. ONGLYZA [Suspect]
     Active Substance: SAXAGLIPTIN HYDROCHLORIDE
     Indication: TYPE 2 DIABETES MELLITUS
     Route: 048
     Dates: start: 20150312
  9. LORAZEPAM. [Concomitant]
     Active Substance: LORAZEPAM
  10. OXYCODONE ACETAMINOPHEN [Concomitant]
     Active Substance: ACETAMINOPHEN\OXYCODONE HYDROCHLORIDE
  11. CELECOXIB. [Concomitant]
     Active Substance: CELECOXIB
     Dates: start: 20170328
  12. ONDANSETRON [Concomitant]
     Active Substance: ONDANSETRON
  13. FENTANYL. [Concomitant]
     Active Substance: FENTANYL
  14. LISINOPRIL. [Concomitant]
     Active Substance: LISINOPRIL
  15. ASPIRIN. [Concomitant]
     Active Substance: ASPIRIN
  16. KOMBIGLYZE XR [Suspect]
     Active Substance: METFORMIN HYDROCHLORIDE\SAXAGLIPTIN HYDROCHLORIDE
     Indication: TYPE 2 DIABETES MELLITUS
     Route: 048
     Dates: start: 20130807
  17. ACTOS [Concomitant]
     Active Substance: PIOGLITAZONE HYDROCHLORIDE

REACTIONS (3)
  - Cardiac failure congestive [Unknown]
  - Cardiac failure [Unknown]
  - Chronic left ventricular failure [Unknown]

NARRATIVE: CASE EVENT DATE: 20170205
